FAERS Safety Report 14950765 (Version 1)
Quarter: 2018Q2

REPORT INFORMATION
  Report Type: Report from Study
  Country: IT (occurrence: IT)
  Receive Date: 20180530
  Receipt Date: 20180530
  Transmission Date: 20180711
  Serious: Yes (Other)
  Sender: FDA-Public Use
  Company Number: IT-ACCORD-037809

PATIENT
  Age: 73 Year
  Sex: Female

DRUGS (4)
  1. AFLIBERCEPT [Suspect]
     Active Substance: AFLIBERCEPT
     Indication: COLORECTAL CANCER METASTATIC
     Dosage: ON 07-JAN-2016, PATIENT RECEIVED MOST RECENT CYCLE 5 ?.LAST CYCLE ON 22-DEC-2015
     Route: 041
     Dates: start: 20151009
  2. IRINOTECAN [Suspect]
     Active Substance: IRINOTECAN
     Indication: COLORECTAL CANCER METASTATIC
     Dosage: ON 07-JAN-2016, PATIENT RECEIVED MOST RECENT CYCLE 5 OF IRINOTECAN AT 182.5 MG.
     Route: 041
     Dates: start: 20151009
  3. FLUOROURACIL. [Suspect]
     Active Substance: FLUOROURACIL
     Indication: COLORECTAL CANCER METASTATIC
     Dosage: ON 07-JAN-2016, PATIENT RECEIVED RECENT CYCLE 5 OF FLUOROURACIL AT 404.5 AND 2426 MG
     Route: 041
     Dates: start: 20151009
  4. CALCIUM FOLINATE/FOLINIC ACID/SODIUM FOLINATE [Suspect]
     Active Substance: LEUCOVORIN
     Indication: COLORECTAL CANCER METASTATIC
     Dosage: PATIENT RECEIVED THIRD CYCLE ON 23-NOV-2015, LAST CYCLE AT 577.8 MG ON 22-DEC-2015
     Route: 041
     Dates: start: 20151009

REACTIONS (6)
  - Neutrophil count decreased [Recovered/Resolved]
  - Anaemia [Recovered/Resolved]
  - Dyspnoea [Recovered/Resolved]
  - Bronchitis [Unknown]
  - Rhinitis [Unknown]
  - White blood cell count decreased [Recovered/Resolved]

NARRATIVE: CASE EVENT DATE: 20151204
